FAERS Safety Report 9921327 (Version 1)
Quarter: 2014Q1

REPORT INFORMATION
  Report Type: Report from Study
  Country: AR (occurrence: AR)
  Receive Date: 20140225
  Receipt Date: 20140225
  Transmission Date: 20141002
  Serious: Yes (Other)
  Sender: FDA-Public Use
  Company Number: PHHY2014AR022451

PATIENT
  Sex: Male

DRUGS (1)
  1. DIOVAN D [Suspect]
     Dosage: 320/25 MG, UNK
     Route: 048
     Dates: start: 20130513

REACTIONS (2)
  - Chronic obstructive pulmonary disease [Recovering/Resolving]
  - Asthma [Unknown]
